FAERS Safety Report 5164542-6 (Version None)
Quarter: 2006Q4

REPORT INFORMATION
  Report Type: 
  Country: None (occurrence: None)
  Receive Date: 20061205
  Receipt Date: 20061113
  Transmission Date: 20070319
  Serious: Yes (Hospitalization)
  Sender: FDA-Public Use
  Company Number: 2006CG01841

PATIENT
  Age: 85 Year
  Sex: Female

DRUGS (7)
  1. FLODIL [Suspect]
     Route: 048
     Dates: end: 20060709
  2. ENALAPRIL MALEATE AND HYDROCHLOROTHIAZIDE [Suspect]
     Route: 048
     Dates: end: 20060709
  3. NEO-MERCAZOLE TAB [Suspect]
     Route: 048
     Dates: start: 20060708, end: 20060708
  4. OMEPRAZOLE [Concomitant]
  5. PROPRANOLOL [Concomitant]
  6. LASIX [Concomitant]
  7. ASPIRIN [Concomitant]

REACTIONS (10)
  - ALANINE AMINOTRANSFERASE INCREASED [None]
  - ASPARTATE AMINOTRANSFERASE INCREASED [None]
  - ASTHENIA [None]
  - BLOOD ALKALINE PHOSPHATASE INCREASED [None]
  - CHOLESTASIS [None]
  - COLD SWEAT [None]
  - CYTOLYTIC HEPATITIS [None]
  - DIARRHOEA [None]
  - HEPATIC FAILURE [None]
  - NAUSEA [None]
